FAERS Safety Report 8801983 (Version 1)
Quarter: 2012Q4

REPORT INFORMATION
  Report Type: 
  Country: US (occurrence: US)
  Receive Date: 20120921
  Receipt Date: 20120921
  Transmission Date: 20130627
  Serious: Yes (Hospitalization, Other)
  Sender: FDA-Public Use
  Company Number: US-TEVA-359897USA

PATIENT
  Sex: Female

DRUGS (1)
  1. COPAXONE [Suspect]
     Indication: MULTIPLE SCLEROSIS
     Route: 058
     Dates: start: 20090702

REACTIONS (5)
  - Insomnia [Unknown]
  - Heat stroke [Unknown]
  - Fatigue [Unknown]
  - Pain [Unknown]
  - Multiple sclerosis relapse [Unknown]
